FAERS Safety Report 7369822-1 (Version None)
Quarter: 2011Q1

REPORT INFORMATION
  Report Type: 
  Country: None (occurrence: None)
  Receive Date: 20110323
  Receipt Date: 20110315
  Transmission Date: 20110831
  Serious: Yes (Other)
  Sender: FDA-Public Use
  Company Number: FR-PFIZER INC-2011053151

PATIENT
  Age: 80 Year
  Sex: Female

DRUGS (20)
  1. SOLU-MEDROL [Suspect]
     Indication: BRONCHIAL DISORDER
     Dosage: 40 MG, UNK
     Route: 030
     Dates: start: 20101229, end: 20101229
  2. FOZITEC [Suspect]
     Indication: HYPERTENSION
     Dosage: 10 MG, 1X/DAY
     Route: 048
     Dates: start: 20101229
  3. SOLUPRED [Suspect]
     Indication: BRONCHIAL DISORDER
     Dosage: 20 MG, 2X/DAY
     Route: 048
     Dates: start: 20101229, end: 20101231
  4. SOLUPRED [Suspect]
     Dosage: 20 MG DAILY
     Route: 048
     Dates: start: 20101231
  5. NEXIUM [Concomitant]
     Dosage: UNK
     Dates: end: 20101227
  6. ROCEPHIN [Suspect]
     Indication: BRONCHITIS
     Dosage: 1 G, UNK
     Route: 030
     Dates: start: 20101230, end: 20110103
  7. BACTRIM [Suspect]
     Indication: RESPIRATORY TRACT INFECTION
     Dosage: UNK
     Route: 048
     Dates: start: 20101201, end: 20101230
  8. OXYCONTIN [Concomitant]
     Dosage: 10 MG, 2X/DAY
     Dates: start: 20101207
  9. EUPRESSYL [Concomitant]
     Dosage: UNK
     Dates: end: 20101229
  10. HALDOL [Suspect]
     Indication: CONFUSIONAL STATE
     Dosage: 5 GTT, 2X/DAY
     Route: 048
     Dates: start: 20101224, end: 20101230
  11. ACTONEL [Concomitant]
     Dosage: UNK
     Dates: start: 20101130
  12. SOTALOL [Concomitant]
     Dosage: 1 DF, 1X/DAY
  13. NEURONTIN [Suspect]
     Indication: PAIN
     Dosage: UNK
     Route: 048
  14. NEURONTIN [Suspect]
     Dosage: 100 MG, 2X/DAY
     Route: 048
     Dates: start: 20110105, end: 20110110
  15. LASIX [Concomitant]
     Dosage: UNK
     Dates: start: 20101201, end: 20110110
  16. OLMETEC [Concomitant]
     Dosage: UNK
     Dates: end: 20101229
  17. NEURONTIN [Suspect]
     Dosage: 400 MG SIX TIMES DAILY
     Route: 048
     Dates: start: 20101130, end: 20110104
  18. XARELTO [Suspect]
     Indication: PROPHYLAXIS
     Dosage: 1 DF, 1X/DAY
     Route: 048
     Dates: start: 20101214, end: 20110110
  19. MOTILIUM [Concomitant]
     Dosage: 3 DF, 1X/DAY
     Dates: start: 20101201, end: 20101227
  20. LOVENOX [Concomitant]
     Dosage: UNK
     Dates: start: 20101130, end: 20101213

REACTIONS (4)
  - HALLUCINATION [None]
  - RESPIRATORY TRACT INFECTION [None]
  - COLITIS ISCHAEMIC [None]
  - DIARRHOEA [None]
